FAERS Safety Report 9391365 (Version 4)
Quarter: 2013Q4

REPORT INFORMATION
  Report Type: Spontaneous
  Country: IT (occurrence: IT)
  Receive Date: 20130709
  Receipt Date: 20131003
  Transmission Date: 20140711
  Serious: Yes (Other)
  Sender: FDA-Public Use
  Company Number: IT-UCBSA-090810

PATIENT
  Age: 52 Year
  Sex: Male
  Weight: 70 kg

DRUGS (4)
  1. VIMPAT [Suspect]
     Indication: PARTIAL SEIZURES
     Dosage: STRENGTH:50 MG
     Route: 048
     Dates: start: 20130406, end: 20130408
  2. KEPPRA [Concomitant]
     Indication: PARTIAL SEIZURES
     Dosage: SINCE 19 MONTHS; STRENGTH: 500 MG; 60 TABLETS
     Route: 048
  3. TEGRETOL [Concomitant]
     Indication: PARTIAL SEIZURES
     Dosage: UNKNOWN DOSE
     Route: 048
     Dates: start: 20130406, end: 20130416
  4. TOLEP [Concomitant]
     Indication: PARTIAL SEIZURES
     Dosage: DIVISIBLE TABLETS, 50 TABLETS
     Route: 048
     Dates: start: 20100101, end: 20130405

REACTIONS (1)
  - Delirium [Recovered/Resolved]
